FAERS Safety Report 24950525 (Version 3)
Quarter: 2025Q1

REPORT INFORMATION
  Report Type: Spontaneous
  Country: DE (occurrence: DE)
  Receive Date: 20250210
  Receipt Date: 20250317
  Transmission Date: 20250408
  Serious: Yes (Other)
  Sender: ORGANON
  Company Number: DE-ORGANON-O2502DEU000586

PATIENT
  Age: 51 Year
  Sex: Female

DRUGS (6)
  1. ETONOGESTREL [Suspect]
     Active Substance: ETONOGESTREL
     Indication: Contraception
     Route: 059
     Dates: start: 20240405
  2. PROGESTERONE [Suspect]
     Active Substance: PROGESTERONE
     Dates: start: 2024
  3. CANDESARTAN [Concomitant]
     Active Substance: CANDESARTAN
  4. BISOPROLOL [Concomitant]
     Active Substance: BISOPROLOL
  5. MARCUMAR [Concomitant]
     Active Substance: PHENPROCOUMON
  6. PANTOPRAZOLE [Concomitant]
     Active Substance: PANTOPRAZOLE

REACTIONS (9)
  - Heavy menstrual bleeding [Unknown]
  - Device dislocation [Not Recovered/Not Resolved]
  - Menstruation irregular [Unknown]
  - Uterine polyp [Unknown]
  - Dysmenorrhoea [Unknown]
  - Device issue [Not Recovered/Not Resolved]
  - Complication associated with device [Recovered/Resolved]
  - Product use issue [Unknown]
  - Contraindicated product administered [Unknown]

NARRATIVE: CASE EVENT DATE: 20240101
